FAERS Safety Report 8818904 (Version 1)
Quarter: 2012Q4

REPORT INFORMATION
  Report Type: Spontaneous
  Country: US (occurrence: None)
  Receive Date: 20121004
  Receipt Date: 20121004
  Transmission Date: 20130627
  Serious: No
  Sender: FDA-Public Use
  Company Number: None

PATIENT
  Age: 74 Year
  Sex: Female
  Weight: 61.24 kg

DRUGS (1)
  1. METRONIDAZOLE [Suspect]
     Indication: VAGINAL INFECTION
     Dosage: 1 syringe full, once nightly, vag
     Route: 067
     Dates: start: 20120926, end: 20120928

REACTIONS (5)
  - Nausea [None]
  - Loss of consciousness [None]
  - Spinal column injury [None]
  - Joint injury [None]
  - Muscle injury [None]
